FAERS Safety Report 7252290 (Version 3)
Quarter: 2020Q3

REPORT INFORMATION
  Report Type: Report from Study
  Country: US (occurrence: US)
  Receive Date: 20100122
  Receipt Date: 20100216
  Transmission Date: 20201105
  Serious: Yes (Death, Hospitalization)
  Sender: FDA-Public Use
  Company Number: US-ROCHE-680351

PATIENT
  Age: 45 Year
  Sex: Female

DRUGS (2)
  1. PREDNISONE. [Concomitant]
     Active Substance: PREDNISONE
     Indication: POLYMYOSITIS
     Dosage: START DATE: END OF 2002
     Dates: start: 2002
  2. IBANDRONIC ACID. [Suspect]
     Active Substance: IBANDRONIC ACID
     Indication: OSTEOPOROSIS
     Route: 065
     Dates: start: 200801

REACTIONS (6)
  - Death [Fatal]
  - Influenza like illness [Unknown]
  - Spinal fracture [Unknown]
  - Staphylococcal infection [Unknown]
  - Road traffic accident [Unknown]
  - Device related infection [Unknown]

NARRATIVE: CASE EVENT DATE: 20090930
